FAERS Safety Report 7797841-X (Version None)
Quarter: 2011Q4

REPORT INFORMATION
  Report Type: 
  Country: None (occurrence: None)
  Receive Date: 20111004
  Receipt Date: 20111004
  Transmission Date: 20120403
  Serious: No
  Sender: FDA-Public Use
  Company Number: None

PATIENT
  Age: 79 Year
  Sex: Male
  Weight: 69.1 kg

DRUGS (1)
  1. LISINOPRIL [Suspect]
     Dosage: 10 MG EVERY DAY PO ; EVERY DAY
     Route: 048

REACTIONS (2)
  - FACE OEDEMA [None]
  - URTICARIA [None]
